FAERS Safety Report 12136450 (Version 2)
Quarter: 2016Q1

REPORT INFORMATION
  Report Type: Spontaneous
  Country: US (occurrence: US)
  Receive Date: 20160302
  Receipt Date: 20160310
  Transmission Date: 20160526
  Serious: No
  Sender: FDA-Public Use
  Company Number: US-PFIZER INC-2016127483

PATIENT
  Age: 84 Year
  Sex: Male
  Weight: 67 kg

DRUGS (5)
  1. INLYTA [Suspect]
     Active Substance: AXITINIB
     Indication: RENAL CANCER
     Dosage: 5 MG, 2X/DAY (ONE IN THE MORNING AND ONE BEFORE BED)
     Route: 048
     Dates: start: 20151222, end: 20160222
  2. INLYTA [Suspect]
     Active Substance: AXITINIB
     Dosage: 5 MG, 2X/DAY
     Route: 048
     Dates: start: 20151018
  3. METOCLOPRAM [Concomitant]
     Active Substance: METOCLOPRAMIDE
     Indication: NAUSEA
     Dosage: 5 MG, 2X/DAY (1 BY MOUTH TWO TIMES DAILY OR AS NEEDED)
  4. OMEPRAZOLE. [Concomitant]
     Active Substance: OMEPRAZOLE
     Indication: ERUCTATION
     Dosage: 20 MG, DAILY
  5. MORPHINE SULFATE. [Concomitant]
     Active Substance: MORPHINE SULFATE
     Indication: PAIN
     Dosage: 15 MG, (1 TABLET BY MOUTH EVERY 12 HOURS AS NEEDED)

REACTIONS (11)
  - Chromaturia [Recovered/Resolved]
  - Vomiting [Recovered/Resolved]
  - Decreased appetite [Unknown]
  - Peripheral swelling [Unknown]
  - Renal cancer [Unknown]
  - Constipation [Unknown]
  - Nausea [Unknown]
  - Disease progression [Unknown]
  - Dehydration [Recovered/Resolved]
  - Yellow skin [Recovered/Resolved]
  - Jaundice [Unknown]
